FAERS Safety Report 6448849-8 (Version None)
Quarter: 2009Q4

REPORT INFORMATION
  Report Type: 
  Country: None (occurrence: None)
  Receive Date: 20091120
  Receipt Date: 20091113
  Transmission Date: 20100525
  Serious: Yes (Hospitalization, Other)
  Sender: FDA-Public Use
  Company Number: DE-ASTRAZENECA-2009SE12888

PATIENT
  Age: 19007 Day
  Sex: Female

DRUGS (2)
  1. SCANDICAIN [Suspect]
     Route: 042
  2. HEPARIN [Suspect]

REACTIONS (12)
  - ABDOMINAL PAIN [None]
  - CIRCULATORY COLLAPSE [None]
  - DRUG ADMINISTRATION ERROR [None]
  - FAECES DISCOLOURED [None]
  - GASTRITIS EROSIVE [None]
  - HYPOAESTHESIA [None]
  - HYPOKINESIA [None]
  - HYPOTENSION [None]
  - LIVER INJURY [None]
  - PARAESTHESIA [None]
  - PARAESTHESIA ORAL [None]
  - TACHYCARDIA [None]
